FAERS Safety Report 15390152 (Version 1)
Quarter: 2018Q3

REPORT INFORMATION
  Report Type: Spontaneous
  Country: PT (occurrence: PT)
  Receive Date: 20180917
  Receipt Date: 20180917
  Transmission Date: 20181010
  Serious: Yes (Other)
  Sender: FDA-Public Use
  Company Number: PT-TEVA-2018-PT-954179

PATIENT
  Sex: Male

DRUGS (6)
  1. COTRIMOXAZOLE [Suspect]
     Active Substance: SULFAMETHOXAZOLE\TRIMETHOPRIM
     Indication: OSTEOMYELITIS BACTERIAL
     Dosage: 50 MG/KG DAILY;
     Route: 048
  2. RIFAMPICIN [Suspect]
     Active Substance: RIFAMPIN
     Indication: OSTEOMYELITIS BACTERIAL
     Dosage: 20 MG/KG DAILY;
     Route: 048
  3. RIFAMPICIN [Suspect]
     Active Substance: RIFAMPIN
     Indication: BRUCELLOSIS
  4. COTRIMOXAZOLE [Suspect]
     Active Substance: SULFAMETHOXAZOLE\TRIMETHOPRIM
     Indication: BRUCELLOSIS
  5. GENTAMICIN. [Suspect]
     Active Substance: GENTAMICIN
     Indication: OSTEOMYELITIS BACTERIAL
     Dosage: 5 MG/KG DAILY;
     Route: 042
  6. GENTAMICIN. [Suspect]
     Active Substance: GENTAMICIN
     Indication: BRUCELLOSIS

REACTIONS (1)
  - Jarisch-Herxheimer reaction [Unknown]
